FAERS Safety Report 11790265 (Version 1)
Quarter: 2015Q4

REPORT INFORMATION
  Report Type: Spontaneous
  Country: US (occurrence: None)
  Receive Date: 20151130
  Receipt Date: 20151130
  Transmission Date: 20160305
  Serious: Yes (Other)
  Sender: FDA-Public Use
  Company Number: None

PATIENT
  Age: 33 Year
  Sex: Female

DRUGS (4)
  1. PREDNISONE. [Concomitant]
     Active Substance: PREDNISONE
  2. PROGESTERONE OIL 50MG/ML WESTWARD [Suspect]
     Active Substance: PROGESTERONE
     Indication: INFERTILITY
     Route: 030
  3. ESTRADIOL. [Concomitant]
     Active Substance: ESTRADIOL
  4. MINIVELLE  PATCH [Concomitant]

REACTIONS (2)
  - Injection site pain [None]
  - Accidental overdose [None]

NARRATIVE: CASE EVENT DATE: 20151127
